FAERS Safety Report 20531050 (Version 1)
Quarter: 2022Q1

REPORT INFORMATION
  Report Type: Spontaneous
  Country: BR (occurrence: BR)
  Receive Date: 20220301
  Receipt Date: 20220301
  Transmission Date: 20220423
  Serious: Yes (Other)
  Sender: FDA-Public Use
  Company Number: BR-SA-SAC20220208000219

PATIENT
  Age: 36 Year
  Sex: Female
  Weight: 57 kg

DRUGS (4)
  1. ENOXAPARIN SODIUM [Suspect]
     Active Substance: ENOXAPARIN SODIUM
     Indication: Hypercoagulation
     Dosage: 40 MG, QD
     Route: 030
  2. ENOXAPARIN [Concomitant]
     Active Substance: ENOXAPARIN
     Indication: Hypercoagulation
     Route: 030
  3. FOLIC ACID [Concomitant]
     Active Substance: FOLIC ACID
     Indication: Collagen disorder
     Route: 048
     Dates: start: 20220129
  4. VENOCUR TRIPLEX [Concomitant]
     Indication: Cardiac disorder
     Route: 048

REACTIONS (3)
  - Abortion spontaneous [Unknown]
  - Ovulation induction [Unknown]
  - Exposure during pregnancy [Unknown]
